FAERS Safety Report 7120689-6 (Version None)
Quarter: 2010Q4

REPORT INFORMATION
  Report Type: 
  Country: None (occurrence: None)
  Receive Date: 20101119
  Receipt Date: 20101119
  Transmission Date: 20110411
  Serious: Yes (Life-Threatening, Disabling)
  Sender: FDA-Public Use
  Company Number: None

PATIENT
  Sex: Male
  Weight: 65.7716 kg

DRUGS (1)
  1. CRESTOR [Suspect]
     Indication: BLOOD CHOLESTEROL INCREASED
     Dosage: 40 MG 1X DAY
     Dates: start: 20070101

REACTIONS (6)
  - FATIGUE [None]
  - HEPATIC ENZYME INCREASED [None]
  - MALAISE [None]
  - MUSCULAR WEAKNESS [None]
  - UNEMPLOYMENT [None]
  - WEIGHT DECREASED [None]
